FAERS Safety Report 9871465 (Version 2)
Quarter: 2014Q1

REPORT INFORMATION
  Report Type: Report from Study
  Country: CA (occurrence: CA)
  Receive Date: 20140205
  Receipt Date: 20140205
  Transmission Date: 20141002
  Serious: Yes (Hospitalization, Other)
  Sender: FDA-Public Use
  Company Number: CA-BRISTOL-MYERS SQUIBB COMPANY-16659344

PATIENT
  Age: 48 Year
  Sex: Female
  Weight: 100 kg

DRUGS (17)
  1. ORENCIA [Suspect]
     Indication: RHEUMATOID ARTHRITIS
     Dosage: NO OF INF-7,LAST DOSE-31MAY12,LAST DOSE ON: 23AUG2012
     Route: 042
     Dates: start: 20120403, end: 20120824
  2. PREDNISONE [Suspect]
  3. FENTANYL PATCH [Concomitant]
  4. CALCITONIN [Concomitant]
  5. GABAPENTIN [Concomitant]
  6. STATEX [Concomitant]
  7. FUROSEMIDE [Concomitant]
  8. BISOPROLOL [Concomitant]
  9. NAPROXEN [Concomitant]
  10. CALCIUM [Concomitant]
  11. LORAZEPAM [Concomitant]
  12. VITAMIN D [Concomitant]
     Dosage: TABS
  13. ASPIRIN [Concomitant]
  14. ENTROPHEN [Concomitant]
  15. NEXIUM [Concomitant]
  16. EPIPEN [Concomitant]
  17. POTASSIUM [Concomitant]

REACTIONS (6)
  - Wound [Not Recovered/Not Resolved]
  - Arthropathy [Unknown]
  - Post procedural infection [Not Recovered/Not Resolved]
  - Headache [Unknown]
  - Infection [Unknown]
  - Local swelling [Unknown]
